FAERS Safety Report 19429612 (Version 6)
Quarter: 2025Q2

REPORT INFORMATION
  Report Type: Report from Study
  Country: JP (occurrence: JP)
  Receive Date: 20210617
  Receipt Date: 20250417
  Transmission Date: 20250716
  Serious: Yes (Disabling)
  Sender: BIOGEN
  Company Number: JP-BIOGEN-2019BI00781840

PATIENT
  Age: 51 Year
  Sex: Female
  Weight: 54 kg

DRUGS (3)
  1. TECFIDERA [Suspect]
     Active Substance: DIMETHYL FUMARATE
     Indication: Relapsing-remitting multiple sclerosis
     Route: 050
     Dates: start: 20181112, end: 20181209
  2. TECFIDERA [Suspect]
     Active Substance: DIMETHYL FUMARATE
     Route: 050
     Dates: start: 20181210
  3. SOLU-MEDROL [Concomitant]
     Active Substance: METHYLPREDNISOLONE SODIUM SUCCINATE
     Indication: Relapsing-remitting multiple sclerosis
     Route: 050
     Dates: start: 20190212, end: 20190214

REACTIONS (3)
  - Multiple sclerosis relapse [Recovered/Resolved with Sequelae]
  - Lymphocyte count decreased [Recovered/Resolved]
  - White blood cell count decreased [Not Recovered/Not Resolved]

NARRATIVE: CASE EVENT DATE: 20190201
